FAERS Safety Report 5274079-1 (Version None)
Quarter: 2007Q1

REPORT INFORMATION
  Report Type: 
  Country: None (occurrence: None)
  Receive Date: 20070323
  Receipt Date: 20070312
  Transmission Date: 20070707
  Serious: Yes (Hospitalization, Other)
  Sender: FDA-Public Use
  Company Number: US-MERCK-0703USA04193

PATIENT
  Age: 55 Year
  Sex: Female
  Weight: 88 kg

DRUGS (15)
  1. VYTORIN [Suspect]
     Indication: HYPERLIPIDAEMIA
     Route: 048
     Dates: start: 20050712, end: 20061201
  2. VYTORIN [Suspect]
     Route: 048
     Dates: start: 20070207
  3. JANUVIA [Concomitant]
     Indication: DIABETES MELLITUS
     Route: 048
     Dates: start: 20061210
  4. NIASPAN [Concomitant]
     Route: 065
  5. VICODIN [Concomitant]
     Route: 065
  6. HYDROCHLOROTHIAZIDE AND LISINOPRIL [Concomitant]
     Route: 065
  7. DILTIAZEM HYDROCHLORIDE [Concomitant]
     Route: 065
  8. WELLBUTRIN XL [Concomitant]
     Route: 065
  9. ACTOS [Concomitant]
     Route: 065
  10. ASPIRIN [Concomitant]
     Route: 065
  11. PLAVIX [Concomitant]
     Route: 065
  12. COREG [Concomitant]
     Route: 065
  13. SYNTHROID [Concomitant]
     Route: 065
  14. NITROGLYCERIN [Concomitant]
     Route: 060
  15. LEXAPRO [Concomitant]
     Route: 065

REACTIONS (8)
  - ALANINE AMINOTRANSFERASE INCREASED [None]
  - ASPARTATE AMINOTRANSFERASE INCREASED [None]
  - BLOOD CREATINE PHOSPHOKINASE INCREASED [None]
  - CARDIOVASCULAR DISORDER [None]
  - DIABETES MELLITUS [None]
  - INTERVERTEBRAL DISC DISORDER [None]
  - MYELOPATHY [None]
  - WEIGHT INCREASED [None]
